FAERS Safety Report 9319298 (Version 3)
Quarter: 2013Q4

REPORT INFORMATION
  Report Type: Report from Study
  Country: JP (occurrence: JP)
  Receive Date: 20130530
  Receipt Date: 20131125
  Transmission Date: 20140711
  Serious: Yes (Hospitalization, Other)
  Sender: FDA-Public Use
  Company Number: PHHO2013JP006987

PATIENT
  Age: 81 Year
  Sex: Male
  Weight: 79 kg

DRUGS (15)
  1. ACZ885 [Suspect]
     Indication: CARDIOVASCULAR EVENT PROPHYLAXIS
     Dosage: 50 MG, BID
     Route: 058
     Dates: start: 20120511
  2. CELECOX [Concomitant]
     Indication: PAIN PROPHYLAXIS
     Dosage: 200 MG, UNK
     Route: 048
     Dates: start: 20130510
  3. MUCOSTA [Concomitant]
     Indication: PROPHYLAXIS AGAINST GASTROINTESTINAL ULCER
     Dosage: 200 MG, UNK
     Route: 048
     Dates: start: 20130510
  4. CASODEX [Concomitant]
     Indication: PROSTATIC MASS
     Dosage: 80 MG, UNK
     Route: 048
     Dates: start: 20130517
  5. XYLOCAINE [Concomitant]
     Indication: URETHRAL PAIN
     Dosage: UNK
     Route: 061
     Dates: start: 20130517
  6. EUGLUCON [Concomitant]
     Indication: DIABETES MELLITUS
     Dosage: 5 MG, UNK
     Route: 048
     Dates: start: 20110805
  7. VICTOZA [Concomitant]
     Indication: DIABETES MELLITUS
     Dosage: 0.9 MG, UNK
     Route: 048
     Dates: start: 20110805
  8. BAYASPIRIN [Concomitant]
     Indication: ISCHAEMIC HEART DISEASE PROPHYLAXIS
     Dosage: 100 MG, UNK
     Route: 048
     Dates: start: 20080903
  9. BLOPRESS [Concomitant]
     Indication: HYPERTENSION
     Dosage: 4 MG, UNK
     Route: 048
     Dates: start: 20080906
  10. LASIX [Concomitant]
     Indication: CARDIAC FAILURE CHRONIC
     Dosage: 20 MG, UNK
     Route: 048
     Dates: start: 20080906
  11. ALDACTONE [Concomitant]
     Indication: CARDIAC FAILURE CHRONIC
     Dosage: 12.5 MG, UNK
     Route: 048
     Dates: start: 20090710
  12. CRESTOR [Concomitant]
     Indication: HYPERLIPIDAEMIA
     Dosage: 2.5 MG, UNK
     Route: 048
     Dates: start: 20110928
  13. ARTIST [Concomitant]
     Indication: HYPERTENSION
     Dosage: 5 MG, UNK
     Route: 048
     Dates: start: 20080917
  14. MAGNESIUM OXIDE [Concomitant]
     Indication: CONSTIPATION
     Dosage: 1 MG, UNK
     Route: 048
     Dates: start: 20110511
  15. PANTOSIN [Concomitant]
     Indication: CONSTIPATION
     Dosage: 2 MG, UNK
     Route: 048
     Dates: start: 20130410

REACTIONS (2)
  - Prostate cancer metastatic [Not Recovered/Not Resolved]
  - Bone cancer metastatic [Not Recovered/Not Resolved]
